FAERS Safety Report 9639714 (Version 1)
Quarter: 2013Q4

REPORT INFORMATION
  Report Type: Spontaneous
  Country: US (occurrence: None)
  Receive Date: 20131021
  Receipt Date: 20131021
  Transmission Date: 20140711
  Serious: No
  Sender: FDA-Public Use
  Company Number: None

PATIENT
  Age: 57 Year
  Sex: Female
  Weight: 53.52 kg

DRUGS (12)
  1. LYRICA CV PREGABALIN [Suspect]
     Indication: NEURALGIA
     Dosage: 1 PILL/DAY
     Route: 048
     Dates: start: 20130903, end: 20130915
  2. LYRICA CV PREGABALIN [Suspect]
     Indication: SURGERY
     Dosage: 1 PILL/DAY
     Route: 048
     Dates: start: 20130903, end: 20130915
  3. LYRICA CV PREGABALIN [Suspect]
     Indication: BACK PAIN
     Dosage: 1 PILL/DAY
     Route: 048
     Dates: start: 20130903, end: 20130915
  4. LEVOTHYROXINE [Concomitant]
  5. LORTAB [Concomitant]
  6. MULTIVITAMIN [Concomitant]
  7. VITAMIN D [Concomitant]
  8. CALCIUM [Concomitant]
  9. B-COMPLEX [Concomitant]
  10. ALIGN [Concomitant]
  11. ACIDOPHILUS [Concomitant]
  12. MIRALAX [Concomitant]

REACTIONS (40)
  - Muscle spasms [None]
  - Muscle twitching [None]
  - Balance disorder [None]
  - Grip strength decreased [None]
  - Paranoia [None]
  - Ligament sprain [None]
  - Erythema [None]
  - Skin ulcer [None]
  - Hallucination [None]
  - Food craving [None]
  - Vaccination site pain [None]
  - Fluid intake reduced [None]
  - Amnesia [None]
  - Withdrawal syndrome [None]
  - Chest pain [None]
  - Palpitations [None]
  - Skin burning sensation [None]
  - Bone pain [None]
  - Myalgia [None]
  - Mobility decreased [None]
  - Tinnitus [None]
  - Headache [None]
  - Ear pain [None]
  - Pain in jaw [None]
  - Toothache [None]
  - Submaxillary gland enlargement [None]
  - Gingival pain [None]
  - Muscle twitching [None]
  - Vision blurred [None]
  - Constipation [None]
  - Nausea [None]
  - Hot flush [None]
  - Anxiety [None]
  - Agitation [None]
  - Confusional state [None]
  - Amnesia [None]
  - Speech disorder [None]
  - Dysphemia [None]
  - Verbigeration [None]
  - Abnormal behaviour [None]
